FAERS Safety Report 7627636-9 (Version None)
Quarter: 2011Q3

REPORT INFORMATION
  Report Type: 
  Country: None (occurrence: None)
  Receive Date: 20110713
  Receipt Date: 20110701
  Transmission Date: 20111222
  Serious: Yes (Life-Threatening)
  Sender: FDA-Public Use
  Company Number: TCI2011A03746

PATIENT
  Age: 65 Year
  Sex: Female

DRUGS (13)
  1. DIOVAN [Concomitant]
  2. NIFEDIPINE CR SAWAI (NIFEDIPINE) [Concomitant]
  3. LIVALO (ITAVASTATIN CALCIUM) [Concomitant]
  4. ASPIRIN [Concomitant]
  5. GLOUCOBAY OD (ACARBOSE) [Concomitant]
  6. NIFELANTERN CR (NIFEDIPINE) [Concomitant]
  7. GLYBURIDE [Concomitant]
  8. AMARYL [Concomitant]
  9. ACTOS [Suspect]
     Indication: DIABETES MELLITUS
     Dosage: 30 MG (30 MG, 1 IN 1 D), PER ORAL
     Route: 048
     Dates: end: 20110627
  10. GLUCOBAY [Concomitant]
  11. GLYBURIDE [Concomitant]
  12. METFORMIN HCL [Concomitant]
  13. LOCHOL (FLUVASTATIN SOIDUM) [Concomitant]

REACTIONS (2)
  - HAEMATURIA [None]
  - BLADDER CANCER [None]
